FAERS Safety Report 6106223-8 (Version None)
Quarter: 2009Q1

REPORT INFORMATION
  Report Type: 
  Country: None (occurrence: None)
  Receive Date: 20090306
  Receipt Date: 20090303
  Transmission Date: 20090719
  Serious: Yes (Hospitalization)
  Sender: FDA-Public Use
  Company Number: US-ELI_LILLY_AND_COMPANY-US200903000788

PATIENT
  Sex: Female
  Weight: 72.562 kg

DRUGS (9)
  1. BYETTA [Suspect]
     Indication: TYPE 2 DIABETES MELLITUS
     Dosage: 5 UG, 2/D
     Route: 058
     Dates: start: 20050101
  2. BYETTA [Suspect]
     Dosage: 10 UG, 2/D
     Route: 058
  3. METFORMIN [Concomitant]
     Indication: TYPE 2 DIABETES MELLITUS
     Dosage: UNK, UNKNOWN
     Route: 048
  4. GLIPIZIDE [Concomitant]
     Indication: TYPE 2 DIABETES MELLITUS
     Dosage: UNK, UNKNOWN
     Route: 048
  5. FUROSEMIDE [Concomitant]
     Dosage: UNK, UNKNOWN
     Route: 048
  6. SPIRONOLACTONE [Concomitant]
     Dosage: UNK, UNKNOWN
     Route: 048
  7. TOPROL-XL [Concomitant]
     Dosage: UNK, UNKNOWN
     Route: 048
  8. LIPITOR [Concomitant]
     Dosage: UNK, UNKNOWN
     Route: 048
  9. BONIVA [Concomitant]
     Dosage: UNK, UNKNOWN
     Route: 048

REACTIONS (6)
  - DIZZINESS [None]
  - FALL [None]
  - GAIT DISTURBANCE [None]
  - JOINT INJURY [None]
  - POST PROCEDURAL COMPLICATION [None]
  - VISUAL ACUITY REDUCED [None]
